FAERS Safety Report 20546129 (Version 3)
Quarter: 2022Q2

REPORT INFORMATION
  Report Type: Spontaneous
  Country: JP (occurrence: JP)
  Receive Date: 20220303
  Receipt Date: 20220623
  Transmission Date: 20220720
  Serious: No
  Sender: FDA-Public Use
  Company Number: JP-GLAXOSMITHKLINE-JP2022JPN037417

PATIENT

DRUGS (3)
  1. SOTROVIMAB [Suspect]
     Active Substance: SOTROVIMAB
     Indication: COVID-19
     Dosage: 500 MG
     Route: 041
     Dates: start: 20220224, end: 20220224
  2. DEXTROMETHORPHAN HYDROBROMIDE [Suspect]
     Active Substance: DEXTROMETHORPHAN HYDROBROMIDE
     Indication: Cough
     Dosage: 45 MG PER DAY
     Route: 048
     Dates: start: 20220222, end: 20220307
  3. TRANSAMIN [Suspect]
     Active Substance: TRANEXAMIC ACID
     Indication: Pharyngitis
     Dosage: 1500 MG PER DAY
     Route: 048
     Dates: start: 20220222, end: 20220307

REACTIONS (2)
  - Exposure during pregnancy [Unknown]
  - Live birth [Unknown]
